FAERS Safety Report 6229746-X (Version None)
Quarter: 2009Q2

REPORT INFORMATION
  Report Type: 
  Country: None (occurrence: None)
  Receive Date: 20090615
  Receipt Date: 20090603
  Transmission Date: 20091009
  Serious: Yes (Hospitalization, Other)
  Sender: FDA-Public Use
  Company Number: PHHY2009ZA10740

PATIENT
  Sex: Male

DRUGS (1)
  1. EXJADE [Suspect]
     Indication: HAEMOSIDEROSIS
     Dosage: 750 MG, QD
     Route: 048

REACTIONS (13)
  - ABDOMINAL PAIN [None]
  - ARTHRALGIA [None]
  - DRUG INEFFECTIVE [None]
  - DUODENAL ULCER [None]
  - ENDOSCOPY GASTROINTESTINAL [None]
  - GASTRIC ULCER [None]
  - HELICOBACTER PYLORI IDENTIFICATION TEST POSITIVE [None]
  - JOINT SWELLING [None]
  - MELAENA [None]
  - OEDEMA MUCOSAL [None]
  - SERUM FERRITIN INCREASED [None]
  - TREATMENT NONCOMPLIANCE [None]
  - VASCULITIS [None]
